FAERS Safety Report 19351722 (Version 1)
Quarter: 2021Q2

REPORT INFORMATION
  Report Type: Spontaneous
  Country: US (occurrence: US)
  Receive Date: 20210531
  Receipt Date: 20210531
  Transmission Date: 20210717
  Serious: Yes (Death, Hospitalization, Disabling, Other)
  Sender: FDA-Public Use
  Company Number: US-AMGEN-USASP2021079665

PATIENT
  Sex: Male

DRUGS (1)
  1. PROLIA [Suspect]
     Active Substance: DENOSUMAB
     Indication: PRODUCT USED FOR UNKNOWN INDICATION
     Dosage: UNK, Q6MO
     Route: 065
     Dates: start: 20181115

REACTIONS (16)
  - Pruritus [Unknown]
  - Bone pain [Unknown]
  - General physical health deterioration [Unknown]
  - Asthenia [Unknown]
  - Death [Fatal]
  - Palpitations [Unknown]
  - Oral mucosal blistering [Unknown]
  - Dental caries [Unknown]
  - Tooth socket haemorrhage [Unknown]
  - Skin exfoliation [Unknown]
  - Dyspnoea [Unknown]
  - Gingival disorder [Unknown]
  - Post procedural haemorrhage [Unknown]
  - Impaired healing [Unknown]
  - Weight decreased [Unknown]
  - Fatigue [Unknown]

NARRATIVE: CASE EVENT DATE: 202001
